FAERS Safety Report 13817526 (Version 2)
Quarter: 2017Q3

REPORT INFORMATION
  Report Type: Spontaneous
  Country: FR (occurrence: FR)
  Receive Date: 20170731
  Receipt Date: 20170831
  Transmission Date: 20171127
  Serious: Yes (Other)
  Sender: FDA-Public Use
  Company Number: FR-PFIZER INC-2017329432

PATIENT
  Age: 31 Year
  Sex: Female

DRUGS (3)
  1. LYRICA [Suspect]
     Active Substance: PREGABALIN
     Indication: HEREDITARY SPASTIC PARAPLEGIA
     Dosage: 25 MG, 1X/DAY
     Route: 048
     Dates: start: 201612, end: 20170130
  2. LYRICA [Suspect]
     Active Substance: PREGABALIN
     Dosage: 75 MG, 3X/DAY
     Dates: end: 20170602
  3. LYRICA [Suspect]
     Active Substance: PREGABALIN
     Dosage: 50 MG, DAILY
     Route: 048
     Dates: start: 20170131

REACTIONS (11)
  - Product use in unapproved indication [Recovered/Resolved]
  - Nasal mucosal disorder [Recovering/Resolving]
  - Vasculitis [Recovering/Resolving]
  - Constipation [Recovering/Resolving]
  - Gingival hypertrophy [Recovering/Resolving]
  - Purpura [Recovering/Resolving]
  - Skin lesion [Recovering/Resolving]
  - Nasal discomfort [Recovering/Resolving]
  - Haemorrhage [Recovering/Resolving]
  - Epistaxis [Recovering/Resolving]
  - Oral discomfort [Recovering/Resolving]

NARRATIVE: CASE EVENT DATE: 201612
